FAERS Safety Report 11403498 (Version 1)
Quarter: 2015Q3

REPORT INFORMATION
  Report Type: Spontaneous
  Country: US (occurrence: US)
  Receive Date: 20150821
  Receipt Date: 20150821
  Transmission Date: 20151125
  Serious: No
  Sender: FDA-Public Use
  Company Number: US-ASTRAZENECA-2015SE77688

PATIENT
  Sex: Female
  Weight: 71.7 kg

DRUGS (2)
  1. METFORMIN [Concomitant]
     Active Substance: METFORMIN HYDROCHLORIDE
     Indication: TYPE 2 DIABETES MELLITUS
     Route: 048
  2. BYDUREON [Suspect]
     Active Substance: EXENATIDE
     Indication: TYPE 2 DIABETES MELLITUS
     Dosage: (2 MG 4 COUNT) 2 MG, ONCE A WEEK
     Route: 058

REACTIONS (4)
  - Injection site erythema [Unknown]
  - Product quality issue [Unknown]
  - Injection site pruritus [Unknown]
  - Injection site mass [Unknown]
